FAERS Safety Report 8042987-4 (Version None)
Quarter: 2012Q1

REPORT INFORMATION
  Report Type: 
  Country: None (occurrence: None)
  Receive Date: 20120112
  Receipt Date: 20120106
  Transmission Date: 20120608
  Serious: Yes (Other)
  Sender: FDA-Public Use
  Company Number: PHHY2010US89759

PATIENT
  Sex: Female

DRUGS (2)
  1. GILENYA [Suspect]
     Dosage: 0.5 MG, QD
     Route: 048
     Dates: start: 20111024, end: 20111223
  2. GILENYA [Suspect]
     Indication: MULTIPLE SCLEROSIS
     Dosage: 0.5 MG, QD
     Route: 048
     Dates: start: 20101229, end: 20110111

REACTIONS (10)
  - EYELID CYST [None]
  - PAIN [None]
  - EYE PAIN [None]
  - TREMOR [None]
  - PLATELET COUNT DECREASED [None]
  - WHITE BLOOD CELL COUNT DECREASED [None]
  - KIDNEY INFECTION [None]
  - MIGRAINE [None]
  - DIZZINESS [None]
  - LYMPHOCYTE COUNT DECREASED [None]
